FAERS Safety Report 9826601 (Version 2)
Quarter: 2014Q1

REPORT INFORMATION
  Report Type: Spontaneous
  Country: US (occurrence: US)
  Receive Date: 20140117
  Receipt Date: 20140303
  Transmission Date: 20141002
  Serious: No
  Sender: FDA-Public Use
  Company Number: US-BIOGENIDEC-2014BI000498

PATIENT
  Age: 34 Year
  Sex: Female

DRUGS (6)
  1. TECFIDERA [Suspect]
     Indication: MULTIPLE SCLEROSIS
     Route: 048
     Dates: start: 20131215
  2. TECFIDERA [Suspect]
     Indication: MULTIPLE SCLEROSIS
     Route: 048
     Dates: start: 20131218, end: 20131221
  3. TECFIDERA [Suspect]
     Indication: MULTIPLE SCLEROSIS
  4. HYDROCHLOROTHIAZIDE [Concomitant]
  5. TOPROMAX [Concomitant]
  6. ZOLOFT [Concomitant]

REACTIONS (4)
  - Headache [Recovered/Resolved]
  - Prescribed underdose [Unknown]
  - Abdominal pain upper [Recovered/Resolved]
  - Diarrhoea [Recovered/Resolved]
